FAERS Safety Report 9032288 (Version 2)
Quarter: 2013Q1

REPORT INFORMATION
  Report Type: Spontaneous
  Country: FR (occurrence: FR)
  Receive Date: 20130122
  Receipt Date: 20130228
  Transmission Date: 20140127
  Serious: Yes (Death, Hospitalization)
  Sender: FDA-Public Use
  Company Number: FR-SANOFI-AVENTIS-2013SA003589

PATIENT
  Age: 73 Year
  Sex: Male
  Weight: 83 kg

DRUGS (8)
  1. JEVTANA [Suspect]
     Indication: PROSTATE CANCER METASTATIC
     Route: 042
     Dates: start: 20121024, end: 20121024
  2. PREDNISONE [Concomitant]
     Indication: HORMONE-REFRACTORY PROSTATE CANCER
     Route: 048
  3. ENANTONE [Concomitant]
     Dosage: ONCE EVERY 3 MONTHS
     Route: 058
  4. APROVEL [Concomitant]
     Indication: HYPERTENSION
  5. PRAVASTATINE [Concomitant]
     Indication: HYPERCHOLESTEROLAEMIA
  6. INEXIUM [Concomitant]
     Indication: GASTROOESOPHAGEAL REFLUX DISEASE
  7. FLECAINE [Concomitant]
     Indication: ATRIAL FIBRILLATION
  8. NEUPOGEN [Concomitant]
     Indication: PROPHYLAXIS
     Route: 058
     Dates: start: 20121028, end: 20121102

REACTIONS (6)
  - Septic shock [Fatal]
  - Thrombocytopenia [Fatal]
  - Neutropenia [Fatal]
  - Pneumonia [Fatal]
  - Pyrexia [Fatal]
  - Rectal haemorrhage [Fatal]
